FAERS Safety Report 9647488 (Version 3)
Quarter: 2014Q1

REPORT INFORMATION
  Report Type: Spontaneous
  Country: US (occurrence: US)
  Receive Date: 20131028
  Receipt Date: 20140226
  Transmission Date: 20141002
  Serious: No
  Sender: FDA-Public Use
  Company Number: US-B.I. PHARMACEUTICALS,INC./RIDGEFIELD-2013-BI-32892BP

PATIENT
  Age: 71 Year
  Sex: Female
  Weight: 60 kg

DRUGS (9)
  1. SPIRIVA [Suspect]
     Indication: CHRONIC OBSTRUCTIVE PULMONARY DISEASE
     Dosage: 18 MCG
     Route: 055
     Dates: start: 20130930
  2. MUCINEX [Concomitant]
     Indication: INCREASED UPPER AIRWAY SECRETION
     Dosage: 600 MG
     Route: 048
  3. BENICAR [Concomitant]
     Indication: HYPERTENSION
     Dosage: 40 MG
     Route: 048
  4. PERCOCET [Concomitant]
     Indication: BACK PAIN
     Route: 048
  5. CARVEDILOL [Concomitant]
     Indication: HYPERTENSION
     Dosage: 12.5 MG
     Route: 048
  6. HYDROCHLOROTHIAZIDE [Concomitant]
     Indication: HYPERTENSION
     Dosage: 25 MG
     Route: 048
  7. CLOPIDOGREL [Concomitant]
     Indication: RIB FRACTURE
     Dosage: 75 MG
     Route: 048
  8. PRAVASTATIN [Concomitant]
     Indication: BLOOD CHOLESTEROL INCREASED
     Dosage: 20 MG
     Route: 048
  9. ASPIRIN [Concomitant]
     Dosage: 81 MG
     Route: 048

REACTIONS (5)
  - Anxiety [Not Recovered/Not Resolved]
  - Dyspnoea [Recovered/Resolved]
  - Hypertension [Not Recovered/Not Resolved]
  - Anxiety [Not Recovered/Not Resolved]
  - Product quality issue [Recovered/Resolved]
